FAERS Safety Report 12137182 (Version 2)
Quarter: 2016Q1

REPORT INFORMATION
  Report Type: Spontaneous
  Country: US (occurrence: US)
  Receive Date: 20160302
  Receipt Date: 20160323
  Transmission Date: 20160526
  Serious: Yes (Other)
  Sender: FDA-Public Use
  Company Number: US-CONCORDIA PHARMACEUTICALS INC.-CO-ZO-US-2016-028

PATIENT
  Age: 41 Year
  Sex: Female

DRUGS (4)
  1. VITAMIN D [Concomitant]
     Active Substance: CHOLECALCIFEROL
     Dosage: UNIT
  2. ZONEGRAN [Suspect]
     Active Substance: ZONISAMIDE
     Indication: DIZZINESS
     Route: 048
     Dates: start: 20151126
  3. ZONEGRAN [Suspect]
     Active Substance: ZONISAMIDE
     Route: 048
     Dates: start: 201602
  4. LORAZEPAM. [Concomitant]
     Active Substance: LORAZEPAM

REACTIONS (3)
  - Seizure [Recovered/Resolved]
  - Drug ineffective [None]
  - Product odour abnormal [None]

NARRATIVE: CASE EVENT DATE: 20151206
